FAERS Safety Report 4970700-3 (Version None)
Quarter: 2006Q2

REPORT INFORMATION
  Report Type: 
  Country: None (occurrence: None)
  Receive Date: 20060411
  Receipt Date: 20060411
  Transmission Date: 20061013
  Serious: Yes (Other)
  Sender: FDA-Public Use
  Company Number: None

PATIENT
  Age: 12 Year
  Sex: Male
  Weight: 37.7 kg

DRUGS (10)
  1. IFOSFAMIDE [Suspect]
     Indication: AMPUTATION
     Dosage: 3500 MG  -2.8 GM/M2-   Q24HR    IV
     Route: 042
     Dates: start: 20060406, end: 20060410
  2. IFOSFAMIDE [Suspect]
     Indication: BONE SARCOMA
     Dosage: 3500 MG  -2.8 GM/M2-   Q24HR    IV
     Route: 042
     Dates: start: 20060406, end: 20060410
  3. DECADRON [Concomitant]
  4. ETOPOSIDE [Concomitant]
  5. MESNA [Concomitant]
  6. NEURONTIN [Concomitant]
  7. EPOGEN [Concomitant]
  8. MORPHINE [Concomitant]
  9. ZOFRAN [Concomitant]
  10. PERCOCET [Concomitant]

REACTIONS (5)
  - AMNESIA [None]
  - CONFUSIONAL STATE [None]
  - DISORIENTATION [None]
  - HALLUCINATION, VISUAL [None]
  - THINKING ABNORMAL [None]
